FAERS Safety Report 7603100-8 (Version None)
Quarter: 2011Q3

REPORT INFORMATION
  Report Type: 
  Country: None (occurrence: None)
  Receive Date: 20110712
  Receipt Date: 20110708
  Transmission Date: 20111222
  Serious: Yes (Other)
  Sender: FDA-Public Use
  Company Number: US-PFIZER INC-2011154657

PATIENT
  Sex: Female
  Weight: 55.329 kg

DRUGS (4)
  1. ACETAMINOPHEN AND HYDROCODONE BITARTRATE [Concomitant]
     Indication: SLEEP DISORDER
     Dosage: 10/325 MG, DAILY
     Route: 048
  2. NEURONTIN [Suspect]
     Indication: NEUROPATHY PERIPHERAL
     Dosage: 100 MG, DAILY
     Route: 048
     Dates: start: 20110706
  3. NEURONTIN [Suspect]
     Indication: BURNING SENSATION
  4. AMBIEN [Concomitant]
     Indication: SLEEP DISORDER
     Dosage: 10MG HALF TO ONE TABLET DAILY
     Route: 048

REACTIONS (4)
  - BLOOD PRESSURE FLUCTUATION [None]
  - VISION BLURRED [None]
  - DYSKINESIA [None]
  - DIZZINESS [None]
